FAERS Safety Report 9285655 (Version 1)
Quarter: 2013Q2

REPORT INFORMATION
  Report Type: Spontaneous
  Country: CA (occurrence: CA)
  Receive Date: 20130513
  Receipt Date: 20130513
  Transmission Date: 20140414
  Serious: Yes (Hospitalization, Other)
  Sender: FDA-Public Use
  Company Number: CA-JNJFOC-20130503043

PATIENT
  Age: 85 Year
  Sex: Male

DRUGS (3)
  1. GALANTAMINE [Suspect]
     Indication: DEMENTIA
     Route: 065
  2. GALANTAMINE [Suspect]
     Indication: DEMENTIA
     Dosage: FOR 1.5 YEARS
     Route: 065
  3. IRBESARTAN [Suspect]
     Indication: DEMENTIA
     Route: 065

REACTIONS (11)
  - Syncope [Unknown]
  - Hypotension [Unknown]
  - Bradycardia [Unknown]
  - Cognitive disorder [Unknown]
  - Abnormal behaviour [Unknown]
  - General physical health deterioration [Unknown]
  - Delirium [Recovered/Resolved]
  - Electrocardiogram QT prolonged [Recovering/Resolving]
  - Arrhythmia [Unknown]
  - Vomiting [Unknown]
  - Diarrhoea [Unknown]
